FAERS Safety Report 19674678 (Version 22)
Quarter: 2025Q2

REPORT INFORMATION
  Report Type: Spontaneous
  Country: GB (occurrence: GB)
  Receive Date: 20210809
  Receipt Date: 20250609
  Transmission Date: 20250716
  Serious: Yes (Hospitalization, Other)
  Sender: BAYER HEALTHCARE PHARMACEUTICALS INC.
  Company Number: None

PATIENT
  Age: 68 Year
  Sex: Female
  Weight: 92 kg

DRUGS (236)
  1. CIPROFLOXACIN [Suspect]
     Active Substance: CIPROFLOXACIN
     Indication: Abdominal discomfort
     Dosage: 1000 MG, DAILY - CUMULATIVE DOSE TO FIRST REACTION: 14000MG
     Route: 065
     Dates: start: 20100917
  2. CIPROFLOXACIN [Suspect]
     Active Substance: CIPROFLOXACIN
     Indication: Depression
     Dosage: 1000 MG, QD
  3. CIPROFLOXACIN [Suspect]
     Active Substance: CIPROFLOXACIN
     Indication: Rheumatoid arthritis
     Dosage: 1000 MG, QD
     Route: 048
     Dates: start: 20200917
  4. VENLAFAXINE HYDROCHLORIDE [Suspect]
     Active Substance: VENLAFAXINE HYDROCHLORIDE
     Indication: Rheumatoid arthritis
     Dosage: 225 MG, ONCE PER DAY
     Route: 065
  5. VENLAFAXINE HYDROCHLORIDE [Suspect]
     Active Substance: VENLAFAXINE HYDROCHLORIDE
     Indication: Depression
  6. VENLAFAXINE HYDROCHLORIDE [Suspect]
     Active Substance: VENLAFAXINE HYDROCHLORIDE
     Indication: Product used for unknown indication
     Dosage: 225 MG, ONCE PER DAY, PROLONGED RELEASE,225 MG, DAILY
  7. VENLAFAXINE HYDROCHLORIDE [Suspect]
     Active Substance: VENLAFAXINE HYDROCHLORIDE
     Indication: Rheumatoid arthritis
     Dosage: 225 MG, ONCE PER DAY
  8. CHARCOAL ACTIVATED [Suspect]
     Active Substance: ACTIVATED CHARCOAL
     Indication: Product used for unknown indication
     Dosage: 1,3-DIPHENYLGUANIDINE
  9. CHARCOAL ACTIVATED [Suspect]
     Active Substance: ACTIVATED CHARCOAL
     Indication: Product used for unknown indication
     Dosage: 750 MG;
  10. CARBAMAZEPINE [Suspect]
     Active Substance: CARBAMAZEPINE
     Indication: Product used for unknown indication
     Dosage: 750 MG, QD
     Dates: start: 20100917
  11. CARBAMAZEPINE [Suspect]
     Active Substance: CARBAMAZEPINE
     Indication: Product used for unknown indication
     Dosage: 750 MG, QD
     Dates: start: 20200917
  12. CARBAMAZEPINE [Suspect]
     Active Substance: CARBAMAZEPINE
     Indication: Product used for unknown indication
     Dosage: 750 MG, QD
     Dates: start: 20210917
  13. LACTOBACILLUS RHAMNOSUS [Suspect]
     Active Substance: LACTOBACILLUS RHAMNOSUS
     Indication: Depression
  14. LACTOBACILLUS RHAMNOSUS [Suspect]
     Active Substance: LACTOBACILLUS RHAMNOSUS
     Indication: Abdominal discomfort
  15. LACTOBACILLUS RHAMNOSUS [Suspect]
     Active Substance: LACTOBACILLUS RHAMNOSUS
     Indication: Depression
  16. SULFAGUANIDINE [Suspect]
     Active Substance: SULFAGUANIDINE
     Indication: Abdominal discomfort
     Dosage: 750 MG,  ONCE PER DAY
  17. SULFAGUANIDINE [Suspect]
     Active Substance: SULFAGUANIDINE
     Indication: Abdominal discomfort
     Dosage: 750 MG, ONCE PER DAY
  18. ENBREL [Suspect]
     Active Substance: ETANERCEPT
     Indication: Rheumatoid arthritis
     Dosage: 50 MG, PER WEEK (50 MG, QW, MYCLIC PEN)
     Route: 058
     Dates: start: 20100917
  19. ENBREL [Suspect]
     Active Substance: ETANERCEPT
     Indication: Rheumatoid arthritis
     Dosage: 50 MG, PER WEEK,QW, MYCLIC PEN
     Route: 058
     Dates: start: 20210917
  20. ENBREL [Suspect]
     Active Substance: ETANERCEPT
     Indication: Rheumatoid arthritis
  21. METHOTREXATE [Suspect]
     Active Substance: METHOTREXATE
     Indication: Rheumatoid arthritis
     Dosage: 17.5 MG, PER WEEK (UNK UNK, WEEKLY (AT 17.5, WEEKLY))
     Dates: start: 20100917
  22. METHOTREXATE [Suspect]
     Active Substance: METHOTREXATE
     Indication: Rheumatoid arthritis
     Dosage: 17.5 MILLIGRAM, Q.W., UNK UNK, Q.W., WEEKLY, AT 17.5 (UNKNOWN UNIT),
     Dates: start: 20100917
  23. METHOTREXATE [Suspect]
     Active Substance: METHOTREXATE
     Indication: Rheumatoid arthritis
     Dosage: 18 MG, PER WEEK
  24. METHOTREXATE [Suspect]
     Active Substance: METHOTREXATE
     Indication: Rheumatoid arthritis
     Dosage: UNK, OW
  25. METHOTREXATE [Suspect]
     Active Substance: METHOTREXATE
     Indication: Rheumatoid arthritis
     Dosage: 18 MG, PER WEEK (18 MG, QW (UNK UNK, WEEKLY (AT 17.5, WEEKLY))
     Dates: start: 20100917
  26. METHOTREXATE [Suspect]
     Active Substance: METHOTREXATE
     Indication: Rheumatoid arthritis
  27. METHOTREXATE [Suspect]
     Active Substance: METHOTREXATE
     Indication: Rheumatoid arthritis
  28. VENLAFAXINE HYDROCHLORIDE [Suspect]
     Active Substance: VENLAFAXINE HYDROCHLORIDE
     Indication: Rheumatoid arthritis
     Dosage: 225 MG, QD, (PROLONGED RELEASE)
  29. VENLAFAXINE HYDROCHLORIDE [Suspect]
     Active Substance: VENLAFAXINE HYDROCHLORIDE
     Indication: Depression
     Dosage: 225 UNK
  30. VENLAFAXINE HYDROCHLORIDE [Suspect]
     Active Substance: VENLAFAXINE HYDROCHLORIDE
     Indication: Rheumatoid arthritis
  31. VENLAFAXINE HYDROCHLORIDE [Suspect]
     Active Substance: VENLAFAXINE HYDROCHLORIDE
     Indication: Rheumatoid arthritis
     Dosage: 225 MG, ONCE PER DAY (PROLONGED RELEASE)
  32. VENLAFAXINE HYDROCHLORIDE [Suspect]
     Active Substance: VENLAFAXINE HYDROCHLORIDE
     Indication: Rheumatoid arthritis
  33. VENLAFAXINE HYDROCHLORIDE [Suspect]
     Active Substance: VENLAFAXINE HYDROCHLORIDE
     Indication: Rheumatoid arthritis
  34. THEOPHYLLINE [Suspect]
     Active Substance: THEOPHYLLINE
     Indication: Depression
  35. THEOPHYLLINE [Suspect]
     Active Substance: THEOPHYLLINE
     Indication: Depression
     Dosage: 750 MG, ONCE PER DAY
  36. THEOPHYLLINE [Suspect]
     Active Substance: THEOPHYLLINE
     Indication: Depression
     Dosage: 750 MG, ONCE PER DAY
  37. AMINOPHYLLINE [Suspect]
     Active Substance: AMINOPHYLLINE
     Indication: Product used for unknown indication
     Dosage: 400 MG, ONCE PER DAY
     Dates: start: 20100917
  38. AMINOPHYLLINE [Suspect]
     Active Substance: AMINOPHYLLINE
     Indication: Product used for unknown indication
     Dosage: 400 MG, ONCE PER DAY
     Dates: start: 20200917
  39. IRBESARTAN [Suspect]
     Active Substance: IRBESARTAN
     Indication: Depression
     Dosage: 150 MG, ONCE PER DAY
     Dates: start: 20100912
  40. IRBESARTAN [Suspect]
     Active Substance: IRBESARTAN
     Indication: Abdominal discomfort
     Dosage: 150 G, ONCE PER DAY
     Dates: start: 20100917
  41. IRBESARTAN [Suspect]
     Active Substance: IRBESARTAN
     Indication: Product used for unknown indication
     Dosage: 150 MG, ONCE PER DAY 150 MG, QD (150 MG, QD (DAILY))
     Dates: start: 20100917
  42. IRBESARTAN [Suspect]
     Active Substance: IRBESARTAN
     Indication: Depression
     Dosage: 150 G, ONCE PER DAY
     Dates: start: 20100917
  43. IRBESARTAN [Suspect]
     Active Substance: IRBESARTAN
     Indication: Depression
     Dosage: 150 G, ONCE PER DAY
     Dates: start: 20100917
  44. IRBESARTAN [Suspect]
     Active Substance: IRBESARTAN
     Indication: Depression
     Dosage: 150 G, ONCE PER DAY
     Dates: start: 20100912
  45. IRBESARTAN [Suspect]
     Active Substance: IRBESARTAN
     Indication: Depression
     Dosage: 150 G, ONCE PER DAY
  46. PROBIOTICS NOS [Suspect]
     Active Substance: PROBIOTICS NOS
     Indication: Depression
     Dosage: DAILY DOSE 750 MG
  47. PROBIOTICS NOS [Suspect]
     Active Substance: PROBIOTICS NOS
     Indication: Abdominal discomfort
  48. PROBIOTICS NOS [Suspect]
     Active Substance: PROBIOTICS NOS
     Indication: Pituitary tumour
  49. PROBIOTICS NOS [Suspect]
     Active Substance: PROBIOTICS NOS
     Indication: Depression
  50. GUANIDINE [Suspect]
     Active Substance: GUANIDINE
     Indication: Depression
     Dosage: 750 MG, ONCE PER DAY (750 MG, QD(1,3-DIPHENYLGUANIDINE))
     Route: 065
  51. GUANIDINE [Suspect]
     Active Substance: GUANIDINE
     Indication: Abdominal discomfort
  52. GUANIDINE [Suspect]
     Active Substance: GUANIDINE
     Indication: Product used for unknown indication
  53. GUANIDINE [Suspect]
     Active Substance: GUANIDINE
     Indication: Depression
  54. GUANIDINE [Suspect]
     Active Substance: GUANIDINE
     Indication: Depression
  55. GUANIDINE [Suspect]
     Active Substance: GUANIDINE
     Indication: Depression
  56. AMOXICILLIN [Suspect]
     Active Substance: AMOXICILLIN
     Indication: Abdominal discomfort
     Dosage: 400 MG, QD
     Dates: start: 20100917
  57. AMOXICILLIN [Suspect]
     Active Substance: AMOXICILLIN
     Indication: Product used for unknown indication
     Dosage: CUMULATIVE DOSE 5600 MG
     Dates: start: 20200917
  58. AMOXICILLIN [Suspect]
     Active Substance: AMOXICILLIN
     Indication: Abdominal discomfort
     Dates: start: 20210904
  59. AMOXICILLIN [Suspect]
     Active Substance: AMOXICILLIN
     Indication: Abdominal discomfort
  60. BIFIDOBACTERIUM LONGUM [Suspect]
     Active Substance: BIFIDOBACTERIUM LONGUM
     Indication: Abdominal discomfort
     Dosage: DAILY DOSE 750 MG
  61. BIFIDOBACTERIUM LONGUM [Suspect]
     Active Substance: BIFIDOBACTERIUM LONGUM
     Indication: Depression
  62. BIFIDOBACTERIUM LONGUM [Suspect]
     Active Substance: BIFIDOBACTERIUM LONGUM
     Indication: Abdominal discomfort
  63. BIFIDOBACTERIUM LONGUM [Suspect]
     Active Substance: BIFIDOBACTERIUM LONGUM
     Indication: Abdominal discomfort
  64. OMEPRAZOLE [Suspect]
     Active Substance: OMEPRAZOLE
     Indication: Abdominal discomfort
     Dosage: 20 MG, ONCE PER DAY
     Dates: start: 20100917
  65. OMEPRAZOLE [Suspect]
     Active Substance: OMEPRAZOLE
     Indication: Product used for unknown indication
     Dosage: 80 MG, ONCE PER DAY (20 MG, 4 TIMES PER DAY)
     Dates: start: 20100917
  66. OMEPRAZOLE [Suspect]
     Active Substance: OMEPRAZOLE
     Indication: Abdominal discomfort
     Dosage: 20 MG, ONCE PER DAY
     Dates: start: 20200917
  67. OMEPRAZOLE [Suspect]
     Active Substance: OMEPRAZOLE
     Indication: Abdominal discomfort
     Dosage: 20 MG,  UNK (BID 40 MG, QD 2X/DAY)
  68. OMEPRAZOLE [Suspect]
     Active Substance: OMEPRAZOLE
     Indication: Abdominal discomfort
     Dosage: 20 MG, 2 TIMES PER DAY (20 MG, BID  40 MG, QD 2X/DAY )
     Dates: start: 20100917
  69. OMEPRAZOLE [Suspect]
     Active Substance: OMEPRAZOLE
     Indication: Abdominal discomfort
     Dosage: 40 MG, ONCE PER DAY (20 MG, 2X/DAY FOR STOMACH;)
     Dates: start: 20100917
  70. OMEPRAZOLE [Suspect]
     Active Substance: OMEPRAZOLE
     Indication: Abdominal discomfort
     Dosage: 20 MG, 4 TIMES PER DAY
     Dates: start: 20100917
  71. OMEPRAZOLE [Suspect]
     Active Substance: OMEPRAZOLE
     Indication: Abdominal discomfort
     Dosage: 40 MG, 2 TIMES PER DAY (40 MG, QD (20 MG, 2X/DAY))
     Dates: start: 20100917
  72. OMEPRAZOLE [Suspect]
     Active Substance: OMEPRAZOLE
     Indication: Abdominal discomfort
     Dosage: 20 MG, 2 TIMES PER DAY (20 MG, 2X/DAY)
     Dates: start: 20100917
  73. OMEPRAZOLE [Suspect]
     Active Substance: OMEPRAZOLE
     Indication: Abdominal discomfort
     Dosage: 80 MG, ONCE PER DAY
     Dates: start: 20200917
  74. OMEPRAZOLE [Suspect]
     Active Substance: OMEPRAZOLE
     Indication: Abdominal discomfort
     Dosage: 20 MG, PER HOUR (480 MILLIGRAM DAILY; 20 MG, 2X/DAY)
  75. OMEPRAZOLE [Suspect]
     Active Substance: OMEPRAZOLE
     Indication: Abdominal discomfort
     Dosage: 80 MG, ONCE PER DAY
  76. OMEPRAZOLE [Suspect]
     Active Substance: OMEPRAZOLE
     Indication: Abdominal discomfort
     Dosage: 20 MG, ONCE PER DAY
  77. VENLAFAXINE [Suspect]
     Active Substance: VENLAFAXINE HYDROCHLORIDE
     Indication: Rheumatoid arthritis
     Dosage: 225 MG, ONCE PER DAY
  78. VENLAFAXINE [Suspect]
     Active Substance: VENLAFAXINE HYDROCHLORIDE
     Indication: Depression
     Dosage: 225 MG, ONCE PER DAY
  79. CARBOCYSTEINE [Suspect]
     Active Substance: CARBOCYSTEINE
     Indication: Rheumatoid arthritis
     Dosage: 750 MG, ONCE PER DAY
     Dates: start: 20100917
  80. CARBOCYSTEINE [Suspect]
     Active Substance: CARBOCYSTEINE
     Indication: Product used for unknown indication
     Dosage: 750 MG, ONCE PER DAY (750 MG, QD)
     Dates: start: 20200917
  81. CARBOCYSTEINE [Suspect]
     Active Substance: CARBOCYSTEINE
     Indication: Rheumatoid arthritis
     Dosage: 750 MG, ONCE PER DAY
  82. CARBOCYSTEINE [Suspect]
     Active Substance: CARBOCYSTEINE
     Indication: Rheumatoid arthritis
  83. CARBOCYSTEINE [Suspect]
     Active Substance: CARBOCYSTEINE
     Indication: Rheumatoid arthritis
     Dosage: 750 MG, ONCE PER DAY (750 MG, QD)
     Dates: start: 20210917
  84. CARBOCYSTEINE [Suspect]
     Active Substance: CARBOCYSTEINE
     Indication: Rheumatoid arthritis
     Dosage: 750 MG, ONCE PER DAY (750 MG, QD)
     Dates: start: 20120917
  85. CARBOCYSTEINE [Suspect]
     Active Substance: CARBOCYSTEINE
     Indication: Rheumatoid arthritis
     Dosage: 750 MG, ONCE PER DAY
  86. PHYLLOCONTIN [Suspect]
     Active Substance: AMINOPHYLLINE
     Indication: Product used for unknown indication
     Dosage: 400 MG, ONCE PER DAY, DAILY
     Dates: start: 20100917
  87. PHYLLOCONTIN [Suspect]
     Active Substance: AMINOPHYLLINE
     Indication: Product used for unknown indication
     Dosage: 400 MG, ONCE PER DAY (400 MG, QD)
     Dates: start: 20100917
  88. PHYLLOCONTIN [Suspect]
     Active Substance: AMINOPHYLLINE
     Indication: Product used for unknown indication
     Dosage: 400 MG, ONCE PER DAY (400 MG, QD)
     Dates: start: 20200917
  89. PHYLLOCONTIN [Suspect]
     Active Substance: AMINOPHYLLINE
     Indication: Product used for unknown indication
     Dosage: 400 MG, ONCE PER DAY (400 MG, QD)
     Dates: start: 20200917
  90. BENDROFLUMETHIAZIDE [Concomitant]
     Active Substance: BENDROFLUMETHIAZIDE
     Indication: Pituitary tumour
     Route: 065
  91. BENDROFLUMETHIAZIDE [Concomitant]
     Active Substance: BENDROFLUMETHIAZIDE
     Indication: Depression
     Route: 065
  92. BENDROFLUMETHIAZIDE [Concomitant]
     Active Substance: BENDROFLUMETHIAZIDE
     Indication: Depression
     Route: 065
  93. BENDROFLUMETHIAZIDE [Concomitant]
     Active Substance: BENDROFLUMETHIAZIDE
     Indication: Pituitary tumour
     Route: 065
  94. BENDROFLUMETHIAZIDE [Concomitant]
     Active Substance: BENDROFLUMETHIAZIDE
     Indication: Pituitary tumour
     Route: 065
  95. BENDROFLUMETHIAZIDE [Concomitant]
     Active Substance: BENDROFLUMETHIAZIDE
     Indication: Depression
     Route: 065
  96. BENDROFLUMETHIAZIDE [Concomitant]
     Active Substance: BENDROFLUMETHIAZIDE
     Indication: Depression
     Route: 065
  97. BENDROFLUMETHIAZIDE [Concomitant]
     Active Substance: BENDROFLUMETHIAZIDE
     Indication: Pituitary tumour
     Route: 065
  98. BENDROFLUMETHIAZIDE [Concomitant]
     Active Substance: BENDROFLUMETHIAZIDE
     Indication: Product used for unknown indication
     Route: 065
  99. BENDROFLUMETHIAZIDE [Concomitant]
     Active Substance: BENDROFLUMETHIAZIDE
     Indication: Pituitary tumour
     Route: 065
  100. BENDROFLUMETHIAZIDE [Concomitant]
     Active Substance: BENDROFLUMETHIAZIDE
     Indication: Pituitary tumour
     Route: 065
  101. BENDROFLUMETHIAZIDE [Concomitant]
     Active Substance: BENDROFLUMETHIAZIDE
     Indication: Pituitary tumour
     Route: 065
  102. BENDROFLUMETHIAZIDE [Concomitant]
     Active Substance: BENDROFLUMETHIAZIDE
     Indication: Pituitary tumour
     Route: 065
  103. BENDROFLUMETHIAZIDE [Concomitant]
     Active Substance: BENDROFLUMETHIAZIDE
     Indication: Pituitary tumour
     Route: 065
  104. BENDROFLUMETHIAZIDE [Concomitant]
     Active Substance: BENDROFLUMETHIAZIDE
     Indication: Pituitary tumour
     Route: 065
  105. BENDROFLUMETHIAZIDE [Concomitant]
     Active Substance: BENDROFLUMETHIAZIDE
     Indication: Pituitary tumour
     Route: 065
  106. BENDROFLUMETHIAZIDE [Concomitant]
     Active Substance: BENDROFLUMETHIAZIDE
     Indication: Pituitary tumour
     Route: 065
  107. BENDROFLUMETHIAZIDE [Concomitant]
     Active Substance: BENDROFLUMETHIAZIDE
     Indication: Pituitary tumour
     Route: 065
  108. BENDROFLUMETHIAZIDE [Concomitant]
     Active Substance: BENDROFLUMETHIAZIDE
     Indication: Pituitary tumour
  109. BENDROFLUMETHIAZIDE [Concomitant]
     Active Substance: BENDROFLUMETHIAZIDE
     Indication: Pituitary tumour
  110. BENDROFLUMETHIAZIDE [Concomitant]
     Active Substance: BENDROFLUMETHIAZIDE
     Indication: Pituitary tumour
  111. CABERGOLINE [Concomitant]
     Active Substance: CABERGOLINE
     Indication: Pituitary tumour
  112. CABERGOLINE [Concomitant]
     Active Substance: CABERGOLINE
     Indication: Empty sella syndrome
     Route: 065
  113. CABERGOLINE [Concomitant]
     Active Substance: CABERGOLINE
     Indication: Rheumatoid arthritis
     Route: 065
  114. CABERGOLINE [Concomitant]
     Active Substance: CABERGOLINE
     Indication: Product used for unknown indication
     Route: 065
  115. CABERGOLINE [Concomitant]
     Active Substance: CABERGOLINE
     Indication: Pituitary tumour
     Route: 065
  116. CABERGOLINE [Concomitant]
     Active Substance: CABERGOLINE
     Indication: Pituitary tumour
     Route: 065
  117. CABERGOLINE [Concomitant]
     Active Substance: CABERGOLINE
     Indication: Pituitary tumour
     Route: 065
  118. CABERGOLINE [Concomitant]
     Active Substance: CABERGOLINE
     Indication: Pituitary tumour
     Route: 065
  119. CABERGOLINE [Concomitant]
     Active Substance: CABERGOLINE
     Indication: Pituitary tumour
     Route: 065
  120. CABERGOLINE [Concomitant]
     Active Substance: CABERGOLINE
     Indication: Pituitary tumour
     Route: 065
  121. CABERGOLINE [Concomitant]
     Active Substance: CABERGOLINE
     Indication: Pituitary tumour
     Route: 065
  122. CABERGOLINE [Concomitant]
     Active Substance: CABERGOLINE
     Indication: Pituitary tumour
     Route: 065
  123. CABERGOLINE [Concomitant]
     Active Substance: CABERGOLINE
     Indication: Pituitary tumour
     Route: 065
  124. CABERGOLINE [Concomitant]
     Active Substance: CABERGOLINE
     Indication: Pituitary tumour
     Route: 065
  125. CABERGOLINE [Concomitant]
     Active Substance: CABERGOLINE
     Indication: Pituitary tumour
     Route: 065
  126. CABERGOLINE [Concomitant]
     Active Substance: CABERGOLINE
     Indication: Pituitary tumour
     Route: 065
  127. CABERGOLINE [Concomitant]
     Active Substance: CABERGOLINE
     Indication: Pituitary tumour
     Route: 065
  128. CABERGOLINE [Concomitant]
     Active Substance: CABERGOLINE
     Indication: Pituitary tumour
     Route: 065
  129. CABERGOLINE [Concomitant]
     Active Substance: CABERGOLINE
     Indication: Pituitary tumour
     Route: 065
  130. CABERGOLINE [Concomitant]
     Active Substance: CABERGOLINE
     Indication: Pituitary tumour
     Route: 065
  131. CABERGOLINE [Concomitant]
     Active Substance: CABERGOLINE
     Indication: Pituitary tumour
     Route: 065
  132. CABERGOLINE [Concomitant]
     Active Substance: CABERGOLINE
     Indication: Pituitary tumour
     Route: 065
  133. CABERGOLINE [Concomitant]
     Active Substance: CABERGOLINE
     Indication: Pituitary tumour
  134. CABERGOLINE [Concomitant]
     Active Substance: CABERGOLINE
     Indication: Pituitary tumour
  135. CABERGOLINE [Concomitant]
     Active Substance: CABERGOLINE
     Indication: Pituitary tumour
  136. CETIRIZINE [Concomitant]
     Active Substance: CETIRIZINE HYDROCHLORIDE
     Indication: Product used for unknown indication
     Route: 065
  137. CETIRIZINE [Concomitant]
     Active Substance: CETIRIZINE HYDROCHLORIDE
     Indication: Abdominal discomfort
     Route: 065
  138. CETIRIZINE [Concomitant]
     Active Substance: CETIRIZINE HYDROCHLORIDE
     Indication: Product used for unknown indication
     Route: 065
  139. CETIRIZINE [Concomitant]
     Active Substance: CETIRIZINE HYDROCHLORIDE
     Indication: Abdominal discomfort
     Route: 065
  140. CETIRIZINE [Concomitant]
     Active Substance: CETIRIZINE HYDROCHLORIDE
     Indication: Product used for unknown indication
     Route: 065
  141. CETIRIZINE [Concomitant]
     Active Substance: CETIRIZINE HYDROCHLORIDE
     Indication: Product used for unknown indication
     Route: 065
  142. CETIRIZINE [Concomitant]
     Active Substance: CETIRIZINE HYDROCHLORIDE
     Indication: Product used for unknown indication
  143. CETIRIZINE [Concomitant]
     Active Substance: CETIRIZINE HYDROCHLORIDE
     Indication: Product used for unknown indication
  144. EZETIMIBE [Concomitant]
     Active Substance: EZETIMIBE
     Indication: Product used for unknown indication
     Dosage: 50 MG, UNK
     Route: 065
     Dates: start: 20100917
  145. EZETIMIBE [Concomitant]
     Active Substance: EZETIMIBE
     Indication: Depression
     Dosage: 50 MG, UNK
     Route: 065
     Dates: start: 20210917
  146. EZETIMIBE [Concomitant]
     Active Substance: EZETIMIBE
     Indication: Product used for unknown indication
     Route: 065
  147. EZETIMIBE [Concomitant]
     Active Substance: EZETIMIBE
     Indication: Product used for unknown indication
     Route: 065
  148. EZETIMIBE [Concomitant]
     Active Substance: EZETIMIBE
     Indication: Product used for unknown indication
     Route: 065
  149. EZETIMIBE [Concomitant]
     Active Substance: EZETIMIBE
     Indication: Product used for unknown indication
     Route: 065
  150. EZETIMIBE [Concomitant]
     Active Substance: EZETIMIBE
     Indication: Product used for unknown indication
     Route: 065
  151. EZETIMIBE [Concomitant]
     Active Substance: EZETIMIBE
     Indication: Product used for unknown indication
     Route: 065
  152. EZETIMIBE [Concomitant]
     Active Substance: EZETIMIBE
     Indication: Product used for unknown indication
     Route: 065
  153. EZETIMIBE [Concomitant]
     Active Substance: EZETIMIBE
     Indication: Product used for unknown indication
     Route: 065
  154. EZETIMIBE [Concomitant]
     Active Substance: EZETIMIBE
     Indication: Product used for unknown indication
     Route: 065
  155. EZETIMIBE [Concomitant]
     Active Substance: EZETIMIBE
     Indication: Product used for unknown indication
     Route: 065
  156. EZETIMIBE [Concomitant]
     Active Substance: EZETIMIBE
     Indication: Product used for unknown indication
     Route: 065
  157. EZETIMIBE [Concomitant]
     Active Substance: EZETIMIBE
     Indication: Product used for unknown indication
     Route: 065
  158. EZETIMIBE [Concomitant]
     Active Substance: EZETIMIBE
     Indication: Product used for unknown indication
     Route: 065
  159. EZETIMIBE [Concomitant]
     Active Substance: EZETIMIBE
     Indication: Product used for unknown indication
     Route: 065
  160. EZETIMIBE [Concomitant]
     Active Substance: EZETIMIBE
     Indication: Product used for unknown indication
  161. FOLIC ACID [Concomitant]
     Active Substance: FOLIC ACID
     Indication: Product used for unknown indication
     Route: 065
  162. FOLIC ACID [Concomitant]
     Active Substance: FOLIC ACID
     Indication: Abdominal discomfort
     Route: 065
  163. FOLIC ACID [Concomitant]
     Active Substance: FOLIC ACID
     Indication: Product used for unknown indication
     Route: 065
  164. FOLIC ACID [Concomitant]
     Active Substance: FOLIC ACID
     Indication: Product used for unknown indication
     Route: 065
  165. FOLIC ACID [Concomitant]
     Active Substance: FOLIC ACID
     Indication: Product used for unknown indication
     Route: 065
  166. FOLIC ACID [Concomitant]
     Active Substance: FOLIC ACID
     Indication: Product used for unknown indication
     Route: 065
  167. FOLIC ACID [Concomitant]
     Active Substance: FOLIC ACID
     Indication: Product used for unknown indication
     Route: 065
  168. FOLIC ACID [Concomitant]
     Active Substance: FOLIC ACID
     Indication: Product used for unknown indication
     Route: 065
  169. FOLIC ACID [Concomitant]
     Active Substance: FOLIC ACID
     Indication: Product used for unknown indication
     Route: 065
  170. FOLIC ACID [Concomitant]
     Active Substance: FOLIC ACID
     Indication: Product used for unknown indication
     Route: 065
  171. FOLIC ACID [Concomitant]
     Active Substance: FOLIC ACID
     Indication: Product used for unknown indication
     Route: 065
  172. FOLIC ACID [Concomitant]
     Active Substance: FOLIC ACID
     Indication: Product used for unknown indication
     Route: 065
  173. FOLIC ACID [Concomitant]
     Active Substance: FOLIC ACID
     Indication: Product used for unknown indication
     Route: 065
  174. FOLIC ACID [Concomitant]
     Active Substance: FOLIC ACID
     Indication: Product used for unknown indication
     Route: 065
  175. FOLIC ACID [Concomitant]
     Active Substance: FOLIC ACID
     Indication: Product used for unknown indication
     Route: 065
  176. FOLIC ACID [Concomitant]
     Active Substance: FOLIC ACID
     Indication: Product used for unknown indication
  177. FOLIC ACID [Concomitant]
     Active Substance: FOLIC ACID
     Indication: Product used for unknown indication
  178. LEVOTHYROXINE [Concomitant]
     Active Substance: LEVOTHYROXINE
     Indication: Product used for unknown indication
     Route: 065
  179. LEVOTHYROXINE [Concomitant]
     Active Substance: LEVOTHYROXINE
     Indication: Abdominal discomfort
     Route: 065
  180. LEVOTHYROXINE [Concomitant]
     Active Substance: LEVOTHYROXINE
     Indication: Product used for unknown indication
     Route: 065
  181. LEVOTHYROXINE [Concomitant]
     Active Substance: LEVOTHYROXINE
     Indication: Abdominal discomfort
     Route: 065
  182. LEVOTHYROXINE [Concomitant]
     Active Substance: LEVOTHYROXINE
     Indication: Product used for unknown indication
     Route: 016
  183. LEVOTHYROXINE [Concomitant]
     Active Substance: LEVOTHYROXINE
     Indication: Product used for unknown indication
     Route: 016
  184. LEVOTHYROXINE [Concomitant]
     Active Substance: LEVOTHYROXINE
     Indication: Product used for unknown indication
     Route: 016
  185. ORUVAIL [Concomitant]
     Active Substance: KETOPROFEN
     Indication: Empty sella syndrome
     Route: 065
  186. ORUVAIL [Concomitant]
     Active Substance: KETOPROFEN
     Indication: Product used for unknown indication
     Route: 065
  187. ORUVAIL [Concomitant]
     Active Substance: KETOPROFEN
     Indication: Empty sella syndrome
     Route: 065
  188. ORUVAIL [Concomitant]
     Active Substance: KETOPROFEN
     Indication: Empty sella syndrome
  189. ORUVAIL [Concomitant]
     Active Substance: KETOPROFEN
     Indication: Empty sella syndrome
     Route: 065
  190. ORUVAIL [Concomitant]
     Active Substance: KETOPROFEN
     Indication: Empty sella syndrome
     Route: 065
  191. ORUVAIL [Concomitant]
     Active Substance: KETOPROFEN
     Indication: Empty sella syndrome
     Route: 065
  192. ORUVAIL [Concomitant]
     Active Substance: KETOPROFEN
     Indication: Empty sella syndrome
     Route: 065
  193. ORUVAIL [Concomitant]
     Active Substance: KETOPROFEN
     Indication: Empty sella syndrome
     Route: 065
  194. ORUVAIL [Concomitant]
     Active Substance: KETOPROFEN
     Indication: Empty sella syndrome
  195. ORUVAIL [Concomitant]
     Active Substance: KETOPROFEN
     Indication: Empty sella syndrome
     Route: 065
  196. ORUVAIL [Concomitant]
     Active Substance: KETOPROFEN
     Indication: Empty sella syndrome
     Route: 065
  197. ORUVAIL [Concomitant]
     Active Substance: KETOPROFEN
     Indication: Empty sella syndrome
     Route: 065
  198. ORUVAIL [Concomitant]
     Active Substance: KETOPROFEN
     Indication: Empty sella syndrome
  199. ORUVAIL [Concomitant]
     Active Substance: KETOPROFEN
     Indication: Empty sella syndrome
     Route: 065
  200. ORUVAIL [Concomitant]
     Active Substance: KETOPROFEN
     Indication: Empty sella syndrome
     Route: 065
  201. ORUVAIL [Concomitant]
     Active Substance: KETOPROFEN
     Indication: Empty sella syndrome
     Route: 065
  202. ORUVAIL [Concomitant]
     Active Substance: KETOPROFEN
     Indication: Empty sella syndrome
     Route: 065
  203. ORUVAIL [Concomitant]
     Active Substance: KETOPROFEN
     Indication: Empty sella syndrome
     Route: 065
  204. ORUVAIL [Concomitant]
     Active Substance: KETOPROFEN
     Indication: Empty sella syndrome
     Route: 065
  205. ORUVAIL [Concomitant]
     Active Substance: KETOPROFEN
     Indication: Empty sella syndrome
     Route: 065
  206. ORUVAIL [Concomitant]
     Active Substance: KETOPROFEN
     Indication: Empty sella syndrome
     Route: 065
  207. ORUVAIL [Concomitant]
     Active Substance: KETOPROFEN
     Indication: Empty sella syndrome
     Route: 065
  208. ORUVAIL [Concomitant]
     Active Substance: KETOPROFEN
     Indication: Empty sella syndrome
     Route: 065
  209. ORUVAIL [Concomitant]
     Active Substance: KETOPROFEN
     Indication: Empty sella syndrome
  210. ORUVAIL [Concomitant]
     Active Substance: KETOPROFEN
     Indication: Empty sella syndrome
  211. DOXYCYCLINE [Concomitant]
     Active Substance: DOXYCYCLINE
     Indication: Pulmonary pain
  212. DOXYCYCLINE [Concomitant]
     Active Substance: DOXYCYCLINE
     Indication: Pulmonary pain
     Route: 065
  213. DOXYCYCLINE [Concomitant]
     Active Substance: DOXYCYCLINE
     Indication: Pulmonary pain
  214. THEOPHYLLINE [Concomitant]
     Active Substance: THEOPHYLLINE
     Indication: Depression
     Dosage: 750 MG, ONCE PER DAY, (750 MG, QD)
     Route: 065
  215. THEOPHYLLINE [Concomitant]
     Active Substance: THEOPHYLLINE
     Indication: Abdominal discomfort
     Dosage: 750 MG, QD
  216. THEOPHYLLINE [Concomitant]
     Active Substance: THEOPHYLLINE
     Indication: Abdominal discomfort
     Dosage: 750 MG, QD
     Route: 065
  217. THEOPHYLLINE [Concomitant]
     Active Substance: THEOPHYLLINE
     Indication: Depression
  218. THEOPHYLLINE [Concomitant]
     Active Substance: THEOPHYLLINE
     Indication: Abdominal discomfort
  219. ZINC [Concomitant]
     Active Substance: ZINC
     Indication: Depression
     Dosage: 750 MG, QD
  220. ZINC [Concomitant]
     Active Substance: ZINC
     Indication: Abdominal discomfort
  221. CARBOCYSTEINE [Concomitant]
     Active Substance: CARBOCYSTEINE
     Indication: Rheumatoid arthritis
     Dosage: 750 MG, QD
  222. CARBOCYSTEINE [Concomitant]
     Active Substance: CARBOCYSTEINE
     Indication: Rheumatoid arthritis
     Dosage: 750 MG, QD
     Dates: start: 20120917
  223. CARBOCYSTEINE [Concomitant]
     Active Substance: CARBOCYSTEINE
     Indication: Rheumatoid arthritis
     Dosage: 750 MG, QD
     Route: 048
     Dates: start: 20210917
  224. DIETARY SUPPLEMENT [Concomitant]
     Active Substance: DIETARY SUPPLEMENT
     Indication: Product used for unknown indication
     Dosage: 750 MG, QD
  225. CHARCOAL [Concomitant]
     Active Substance: ACTIVATED CHARCOAL
  226. CHARCOAL ACTIVATED [Concomitant]
     Active Substance: ACTIVATED CHARCOAL
     Indication: Depression
     Route: 065
  227. CHARCOAL ACTIVATED [Concomitant]
     Active Substance: ACTIVATED CHARCOAL
     Indication: Depression
     Dosage: 750 MG, QD
     Route: 065
  228. CHARCOAL ACTIVATED [Concomitant]
     Active Substance: ACTIVATED CHARCOAL
     Indication: Depression
     Dosage: 750 MG, QD
     Route: 065
  229. CHARCOAL ACTIVATED [Concomitant]
     Active Substance: ACTIVATED CHARCOAL
     Indication: Depression
     Dosage: 750 MG, QD
     Route: 065
  230. CHARCOAL ACTIVATED [Concomitant]
     Active Substance: ACTIVATED CHARCOAL
     Indication: Depression
     Route: 065
  231. CHARCOAL ACTIVATED [Concomitant]
     Active Substance: ACTIVATED CHARCOAL
     Indication: Depression
     Route: 065
  232. ACTIVATED CHARCOAL [Concomitant]
     Active Substance: ACTIVATED CHARCOAL
     Indication: Product used for unknown indication
  233. ACTIVATED CHARCOAL [Concomitant]
     Active Substance: ACTIVATED CHARCOAL
     Indication: Product used for unknown indication
  234. ACTIVATED CHARCOAL [Concomitant]
     Active Substance: ACTIVATED CHARCOAL
     Indication: Product used for unknown indication
  235. ACTIVATED CHARCOAL [Suspect]
     Active Substance: ACTIVATED CHARCOAL
     Indication: Product used for unknown indication
     Dosage: 750 MG, QD
  236. ACTIVATED CHARCOAL [Suspect]
     Active Substance: ACTIVATED CHARCOAL
     Indication: Product used for unknown indication

REACTIONS (14)
  - Drug abuse [Unknown]
  - Intentional product misuse [Unknown]
  - Amyloid arthropathy [Unknown]
  - Overdose [Unknown]
  - Arthropathy [Unknown]
  - Product dose omission issue [Unknown]
  - Abdominal discomfort [Unknown]
  - Off label use [Unknown]
  - Lower respiratory tract infection [Not Recovered/Not Resolved]
  - Knee arthroplasty [Unknown]
  - Obesity [Unknown]
  - Rash [Not Recovered/Not Resolved]
  - Pulmonary pain [Unknown]
  - Product administration error [Unknown]

NARRATIVE: CASE EVENT DATE: 20191029
